FAERS Safety Report 15273986 (Version 3)
Quarter: 2019Q1

REPORT INFORMATION
  Report Type: Report from Study
  Country: US (occurrence: US)
  Receive Date: 20180814
  Receipt Date: 20190214
  Transmission Date: 20190417
  Serious: Yes (Other)
  Sender: FDA-Public Use
  Company Number: PHEH2018US033674

PATIENT
  Age: 51 Year
  Sex: Female

DRUGS (1)
  1. GILENYA [Suspect]
     Active Substance: FINGOLIMOD HYDROCHLORIDE
     Indication: MULTIPLE SCLEROSIS
     Dosage: 0.5 MG, QD
     Route: 048
     Dates: start: 20171017

REACTIONS (10)
  - Eye movement disorder [Not Recovered/Not Resolved]
  - Neuropathy peripheral [Not Recovered/Not Resolved]
  - Burning sensation [Recovered/Resolved]
  - Visual impairment [Not Recovered/Not Resolved]
  - Atrophy [Not Recovered/Not Resolved]
  - Foot deformity [Not Recovered/Not Resolved]
  - Liver function test increased [Unknown]
  - Glucose tolerance impaired [Unknown]
  - Vitamin D decreased [Unknown]
  - Headache [Recovered/Resolved]

NARRATIVE: CASE EVENT DATE: 20180201
